FAERS Safety Report 8686550 (Version 11)
Quarter: 2013Q2

REPORT INFORMATION
  Report Type: Spontaneous
  Country: US (occurrence: US)
  Receive Date: 20120726
  Receipt Date: 20130418
  Transmission Date: 20140414
  Serious: Yes (Hospitalization, Other)
  Sender: FDA-Public Use
  Company Number: US-009507513-1207USA005855

PATIENT
  Sex: Female

DRUGS (4)
  1. FOSAMAX [Suspect]
     Indication: OSTEOPOROSIS
     Dosage: 70 MG, UNK
     Route: 048
     Dates: start: 200305
  2. FOSAMAX PLUS D [Suspect]
     Indication: OSTEOPOROSIS
     Dosage: 70 MG, UNK
     Route: 048
     Dates: start: 200701, end: 200810
  3. ALENDRONATE SODIUM [Suspect]
     Indication: OSTEOPOROSIS
     Dosage: 70 MG, UNK
     Route: 048
     Dates: start: 200810, end: 200904
  4. VIOXX [Concomitant]
     Indication: ARTHRITIS
     Route: 048

REACTIONS (31)
  - Femur fracture [Unknown]
  - Femur fracture [Unknown]
  - Open reduction of fracture [Unknown]
  - Cataract operation [Unknown]
  - Joint manipulation [Unknown]
  - Arthropathy [Unknown]
  - Scar excision [Unknown]
  - Medical device removal [Unknown]
  - Device failure [Unknown]
  - Pain [Recovering/Resolving]
  - Labile blood pressure [Unknown]
  - Urinary tract infection [Unknown]
  - Diverticulum [Unknown]
  - Skin graft [Unknown]
  - Constipation [Recovering/Resolving]
  - Blue toe syndrome [Unknown]
  - Skin ulcer [Unknown]
  - Osteoarthritis [Unknown]
  - Thermal burn [Unknown]
  - Embolism [Unknown]
  - Scoliosis [Unknown]
  - Low turnover osteopathy [Unknown]
  - Osteopenia [Unknown]
  - Thrombosis [Unknown]
  - Compression fracture [Unknown]
  - Rotator cuff syndrome [Unknown]
  - Body height decreased [Unknown]
  - Back disorder [Unknown]
  - Back pain [Not Recovered/Not Resolved]
  - Vertigo [Unknown]
  - Gastrooesophageal reflux disease [Unknown]
